FAERS Safety Report 9777734 (Version 4)
Quarter: 2014Q4

REPORT INFORMATION
  Report Type: Report from Study
  Country: FR (occurrence: FR)
  Receive Date: 20131223
  Receipt Date: 20141219
  Transmission Date: 20150529
  Serious: Yes (Hospitalization, Other)
  Sender: FDA-Public Use
  Company Number: FR-ROCHE-1162181

PATIENT
  Age: 49 Year
  Sex: Female

DRUGS (11)
  1. RITUXIMAB [Suspect]
     Active Substance: RITUXIMAB
     Route: 042
     Dates: end: 20071105
  2. RITUXIMAB [Suspect]
     Active Substance: RITUXIMAB
     Route: 042
     Dates: start: 20131203
  3. RITUXIMAB [Suspect]
     Active Substance: RITUXIMAB
     Indication: RHEUMATOID ARTHRITIS
     Dosage: ON DAY 1 NAD DAY 15 ON 28/JUN/2007
     Route: 042
     Dates: start: 20070614
  4. CORTANCYL [Concomitant]
     Active Substance: PREDNISONE
     Route: 065
     Dates: start: 20131203
  5. PARACETAMOL [Concomitant]
     Active Substance: ACETAMINOPHEN
  6. CORTANCYL [Concomitant]
     Active Substance: PREDNISONE
     Route: 065
  7. METHYLPREDNISOLONE. [Concomitant]
     Active Substance: METHYLPREDNISOLONE
     Route: 065
  8. CORTANCYL [Concomitant]
     Active Substance: PREDNISONE
     Route: 065
     Dates: start: 20131217
  9. METHOTREXATE [Concomitant]
     Active Substance: METHOTREXATE
     Route: 065
     Dates: start: 20131203
  10. RITUXIMAB [Suspect]
     Active Substance: RITUXIMAB
     Route: 042
     Dates: start: 20131217
  11. METHOTREXATE [Concomitant]
     Active Substance: METHOTREXATE
     Route: 065
     Dates: start: 20131217

REACTIONS (13)
  - Arthritis infective [Unknown]
  - Fall [Unknown]
  - Malaise [Recovered/Resolved]
  - Weight decreased [Unknown]
  - Productive cough [Unknown]
  - Cholelithiasis [Unknown]
  - Infusion related reaction [Unknown]
  - Asthenia [Unknown]
  - General physical health deterioration [Unknown]
  - Rectal haemorrhage [Recovered/Resolved]
  - Cerebral infarction [Recovered/Resolved with Sequelae]
  - Knee arthroplasty [Unknown]
  - Pruritus [Unknown]

NARRATIVE: CASE EVENT DATE: 20070614
